FAERS Safety Report 8251397-6 (Version None)
Quarter: 2012Q2

REPORT INFORMATION
  Report Type: 
  Country: None (occurrence: None)
  Receive Date: 20120402
  Receipt Date: 20120327
  Transmission Date: 20120825
  Serious: Yes (Other)
  Sender: FDA-Public Use
  Company Number: US-PFIZER INC-2012055489

PATIENT
  Sex: Female

DRUGS (9)
  1. LYRICA [Suspect]
     Dosage: 150/100/150MG EVERY EIGHT HOURS
  2. CELEXA [Concomitant]
     Dosage: 30 MG, A DAY
  3. DIAMOX [Concomitant]
     Dosage: 250MG, EACH NIGHT
     Dates: start: 20120117
  4. DIAMOX [Concomitant]
     Indication: INTRACRANIAL PRESSURE INCREASED
     Dosage: 500 MG, 2X/DAY
     Dates: start: 20110809
  5. PROVENTIL PLUS [Concomitant]
     Dosage: UNK, AS NEEDED
  6. TOPAMAX [Concomitant]
     Indication: MIGRAINE
     Dosage: 75 MG, EACH DAY
     Dates: start: 20110808
  7. COMPAZINE [Concomitant]
     Indication: MIGRAINE
     Dosage: 10 MG, Q12 (EVERY 12 HOURS)
  8. FERROUS SULFATE [Concomitant]
     Dosage: UNK
  9. MEDROXYPROGESTERONE [Concomitant]
     Dosage: 10 MG, EVERY DAY

REACTIONS (2)
  - BRAIN OEDEMA [None]
  - MALAISE [None]
